FAERS Safety Report 15374815 (Version 1)
Quarter: 2018Q3

REPORT INFORMATION
  Report Type: Spontaneous
  Country: JP (occurrence: JP)
  Receive Date: 20180912
  Receipt Date: 20180912
  Transmission Date: 20181010
  Serious: Yes (Other)
  Sender: FDA-Public Use
  Company Number: GXJP2018JP001427

PATIENT
  Age: 54 Year
  Sex: Female
  Weight: 38 kg

DRUGS (3)
  1. ISONIAZID. [Suspect]
     Active Substance: ISONIAZID
     Indication: OESOPHAGEAL TUBERCULOSIS
     Dosage: UNK
     Route: 042
  2. ISONIAZID. [Suspect]
     Active Substance: ISONIAZID
     Dosage: UNK
     Route: 048
  3. RIFAMPICIN [Suspect]
     Active Substance: RIFAMPIN
     Indication: OESOPHAGEAL TUBERCULOSIS
     Dosage: UNK
     Route: 048

REACTIONS (4)
  - Paradoxical drug reaction [Recovered/Resolved]
  - Dyspnoea [Recovered/Resolved]
  - Lymphadenopathy [Recovered/Resolved]
  - Tracheal stenosis [Recovered/Resolved]
